FAERS Safety Report 5694821-5 (Version None)
Quarter: 2008Q2

REPORT INFORMATION
  Report Type: 
  Country: None (occurrence: None)
  Receive Date: 20080404
  Receipt Date: 20080401
  Transmission Date: 20081010
  Serious: Yes (Death)
  Sender: FDA-Public Use
  Company Number: US-MERCK-0804USA00713

PATIENT
  Age: 17 Year
  Sex: Male

DRUGS (3)
  1. SINGULAIR [Suspect]
     Indication: HYPERSENSITIVITY
     Route: 048
  2. SINGULAIR [Suspect]
     Indication: ASTHMA
     Route: 048
  3. ALBUTEROL [Concomitant]
     Route: 065

REACTIONS (3)
  - COMPLETED SUICIDE [None]
  - DEPRESSION [None]
  - INSOMNIA [None]
